FAERS Safety Report 25893978 (Version 1)
Quarter: 2025Q4

REPORT INFORMATION
  Report Type: Spontaneous
  Country: JP (occurrence: JP)
  Receive Date: 20251008
  Receipt Date: 20251008
  Transmission Date: 20260118
  Serious: Yes (Other)
  Sender: AMGEN
  Company Number: JP-AMGEN-JPNSP2025195191

PATIENT
  Age: 9 Decade

DRUGS (1)
  1. EVENITY [Suspect]
     Active Substance: ROMOSOZUMAB-AQQG
     Indication: Product used for unknown indication
     Dosage: 210 MILLIGRAM
     Route: 058
     Dates: start: 20250820

REACTIONS (4)
  - Spinal operation [Unknown]
  - Hypoaesthesia [Unknown]
  - Pain in extremity [Unknown]
  - Adverse reaction [Unknown]

NARRATIVE: CASE EVENT DATE: 20250101
